FAERS Safety Report 9882125 (Version 3)
Quarter: 2015Q1

REPORT INFORMATION
  Report Type: Report from Study
  Country: US (occurrence: US)
  Receive Date: 20140207
  Receipt Date: 20150309
  Transmission Date: 20150721
  Serious: Yes (Other)
  Sender: FDA-Public Use
  Company Number: US-UCBSA-111148

PATIENT
  Age: 70 Year
  Sex: Female
  Weight: 75.7 kg

DRUGS (11)
  1. PREDNISONE. [Concomitant]
     Active Substance: PREDNISONE
     Dosage: I TABLET DAILY
     Route: 048
     Dates: start: 20130819
  2. HYDROCODONE-ACETAMINOPHEN 5-500 [Concomitant]
     Dosage: 5-500 MG (1) TAB EVERY 6-8 HRS PRN
     Route: 048
     Dates: start: 20130408
  3. BYSTOLIC [Concomitant]
     Active Substance: NEBIVOLOL HYDROCHLORIDE
     Dosage: 5 MG, ONCE DAILY (QD)
     Route: 048
  4. POTASSIUM CHLORIDE CYRS CR [Concomitant]
     Dosage: 20 MEQ, ONCE DAILY (QD)
     Route: 048
  5. LISINOPRIL. [Concomitant]
     Active Substance: LISINOPRIL
     Dosage: 20 MG, ONCE DAILY (QD)
     Route: 048
  6. CERTOLIZUMAB PEGOL RA [Suspect]
     Active Substance: CERTOLIZUMAB PEGOL
     Indication: RHEUMATOID ARTHRITIS
     Dosage: 200 MG, EV 2 WEEKS(QOW)
     Route: 058
     Dates: start: 20120117, end: 20131231
  7. TYLENOL ARTHRITIS PAIN [Concomitant]
     Active Substance: ACETAMINOPHEN
     Dosage: 650 MG, 2X/DAY (BID)
     Route: 048
  8. TRAMADOL HCL [Concomitant]
     Active Substance: TRAMADOL HYDROCHLORIDE
     Indication: PAIN
     Dosage: EVERY 6 HRS AS NEED
     Route: 048
     Dates: start: 20110303
  9. METHOTREXATE [Concomitant]
     Active Substance: METHOTREXATE
     Indication: RHEUMATOID ARTHRITIS
     Dosage: 22.5 MG, WEEKLY (QW)
     Route: 048
     Dates: start: 20100722
  10. CALCIUM [Concomitant]
     Active Substance: CALCIUM
     Dosage: 2-3 TIMES DAILY
     Route: 048
  11. IBUPROFEN. [Concomitant]
     Active Substance: IBUPROFEN
     Dosage: EVERY 4-6 HOURS
     Route: 048

REACTIONS (1)
  - Latent tuberculosis [Not Recovered/Not Resolved]

NARRATIVE: CASE EVENT DATE: 20140116
